FAERS Safety Report 19931527 (Version 2)
Quarter: 2021Q4

REPORT INFORMATION
  Report Type: Spontaneous
  Country: US (occurrence: US)
  Receive Date: 20211007
  Receipt Date: 20211019
  Transmission Date: 20220303
  Serious: Yes (Hospitalization)
  Sender: FDA-Public Use
  Company Number: US-TEVA-2021-US-1961091

PATIENT
  Age: 32 Year
  Sex: Male

DRUGS (4)
  1. DOXORUBICIN [Suspect]
     Active Substance: DOXORUBICIN
     Indication: Blastic plasmacytoid dendritic cell neoplasia
     Dosage: 50MG/M2 ONCE
     Route: 042
  2. VINCRISTINE [Suspect]
     Active Substance: VINCRISTINE
     Indication: Blastic plasmacytoid dendritic cell neoplasia
     Dosage: 1.4 MG/M2 [CAPPED AT 2 MG] ONCE
     Route: 042
  3. PREDNISONE [Suspect]
     Active Substance: PREDNISONE
     Indication: Blastic plasmacytoid dendritic cell neoplasia
     Dosage: 100 MILLIGRAM DAILY; 100MG DAILY FOR 5 DAYS
     Route: 048
  4. CYCLOPHOSPHAMIDE [Suspect]
     Active Substance: CYCLOPHOSPHAMIDE
     Indication: Blastic plasmacytoid dendritic cell neoplasia
     Dosage: 750 MG/M2 ONCE
     Route: 042

REACTIONS (6)
  - Disseminated intravascular coagulation [Unknown]
  - Tumour lysis syndrome [Unknown]
  - Retinal haemorrhage [Unknown]
  - Retinal exudates [Unknown]
  - Macular oedema [Unknown]
  - Blindness unilateral [Unknown]
